FAERS Safety Report 12631679 (Version 2)
Quarter: 2016Q3

REPORT INFORMATION
  Report Type: Spontaneous
  Country: US (occurrence: US)
  Receive Date: 20160808
  Receipt Date: 20160808
  Transmission Date: 20161109
  Serious: No
  Sender: FDA-Public Use
  Company Number: US-BEH-2015055293

PATIENT
  Sex: Female
  Weight: 74 kg

DRUGS (25)
  1. ACETAMINOPHEN. [Concomitant]
     Active Substance: ACETAMINOPHEN
  2. CLONAZEPAM. [Concomitant]
     Active Substance: CLONAZEPAM
  3. OMEGA 3 [Concomitant]
     Active Substance: OMEGA-3 FATTY ACIDS
  4. DIPHENHYDRAMINE. [Concomitant]
     Active Substance: DIPHENHYDRAMINE
  5. AUGMENTIN [Concomitant]
     Active Substance: AMOXICILLIN\CLAVULANATE POTASSIUM
  6. AMBIEN [Concomitant]
     Active Substance: ZOLPIDEM TARTRATE
  7. FLUNISOLIDE. [Concomitant]
     Active Substance: FLUNISOLIDE
  8. POTASSIUM VITAMIN B-100 [Concomitant]
  9. OMEPRAZOLE. [Concomitant]
     Active Substance: OMEPRAZOLE
  10. ESTROGEN [Concomitant]
     Active Substance: ESTRONE\SUS SCROFA OVARY
  11. AZITHROMYCIN ANHYDROUS. [Concomitant]
     Active Substance: AZITHROMYCIN ANHYDROUS
  12. EPIPEN [Concomitant]
     Active Substance: EPINEPHRINE
  13. AZELASTINE [Concomitant]
     Active Substance: AZELASTINE
  14. HIZENTRA [Suspect]
     Active Substance: HUMAN IMMUNOGLOBULIN G
     Indication: IMMUNODEFICIENCY COMMON VARIABLE
  15. PROBIOTIC [Concomitant]
     Active Substance: PROBIOTICS NOS
  16. CALTRATE [Concomitant]
     Active Substance: CALCIUM CARBONATE
  17. ALLEGRA [Concomitant]
     Active Substance: FEXOFENADINE HYDROCHLORIDE
  18. ASPIRIN. [Concomitant]
     Active Substance: ASPIRIN
  19. HIZENTRA [Suspect]
     Active Substance: HUMAN IMMUNOGLOBULIN G
     Indication: IMMUNODEFICIENCY COMMON VARIABLE
  20. LIDOCAINE. [Concomitant]
     Active Substance: LIDOCAINE
  21. KEFLEX [Concomitant]
     Active Substance: CEPHALEXIN
  22. TRAVATAN [Concomitant]
     Active Substance: TRAVOPROST
  23. LEVOTHYROXINE. [Concomitant]
     Active Substance: LEVOTHYROXINE
  24. POTASSIUM VITAMIN B-100 [Concomitant]
  25. ROBAXIN [Concomitant]
     Active Substance: METHOCARBAMOL

REACTIONS (2)
  - Neuropathy peripheral [Unknown]
  - Back pain [Unknown]
